FAERS Safety Report 10882302 (Version 1)
Quarter: 2015Q1

REPORT INFORMATION
  Report Type: Spontaneous
  Country: US (occurrence: None)
  Receive Date: 20150226
  Receipt Date: 20150226
  Transmission Date: 20150721
  Serious: Yes (Other)
  Sender: FDA-Public Use
  Company Number: KAD201502-000350

PATIENT
  Sex: Female

DRUGS (2)
  1. RIBAVIRIN. [Suspect]
     Active Substance: RIBAVIRIN
  2. INTERFERON (INTERFERON) [Suspect]
     Active Substance: INTERFERON

REACTIONS (2)
  - Haemangioma of liver [None]
  - Cholecystectomy [None]
